FAERS Safety Report 5231371-4 (Version None)
Quarter: 2007Q1

REPORT INFORMATION
  Report Type: 
  Country: None (occurrence: None)
  Receive Date: 20070205
  Receipt Date: 20070205
  Transmission Date: 20070707
  Serious: Yes (Other)
  Sender: FDA-Public Use
  Company Number: None

PATIENT
  Sex: Female
  Weight: 90.7194 kg

DRUGS (2)
  1. GABAPENTIN [Suspect]
     Indication: ANXIETY
     Dosage: 300MG  TID  PO
     Route: 048
     Dates: start: 20070126, end: 20070201
  2. GABAPENTIN [Suspect]
     Indication: NEUROPATHY
     Dosage: 300MG  TID  PO
     Route: 048
     Dates: start: 20070126, end: 20070201

REACTIONS (3)
  - DIARRHOEA [None]
  - GASTROINTESTINAL PAIN [None]
  - PHARMACEUTICAL PRODUCT COMPLAINT [None]
